FAERS Safety Report 24629673 (Version 2)
Quarter: 2025Q1

REPORT INFORMATION
  Report Type: Report from Study
  Country: DE (occurrence: DE)
  Receive Date: 20241118
  Receipt Date: 20250111
  Transmission Date: 20250408
  Serious: Yes (Death, Other)
  Sender: AUROBINDO
  Company Number: DE-UCBSA-2024057033

PATIENT
  Age: 4 Week
  Sex: Male

DRUGS (8)
  1. LEVETIRACETAM [Suspect]
     Active Substance: LEVETIRACETAM
     Indication: Epilepsy
     Route: 065
  2. LEVETIRACETAM [Suspect]
     Active Substance: LEVETIRACETAM
     Indication: Off label use
  3. TOPIRAMATE [Suspect]
     Active Substance: TOPIRAMATE
     Indication: Epilepsy
     Route: 065
  4. DEXAMETHASONE [Suspect]
     Active Substance: DEXAMETHASONE
     Indication: Epilepsy
     Route: 065
  5. PHENOBARBITAL [Suspect]
     Active Substance: PHENOBARBITAL
     Indication: Epilepsy
     Route: 065
  6. PYRIDOXINE [Suspect]
     Active Substance: PYRIDOXINE
     Indication: Epilepsy
     Route: 065
  7. VIGABATRIN [Suspect]
     Active Substance: VIGABATRIN
     Indication: Epilepsy
     Route: 065
  8. VALPROIC ACID [Suspect]
     Active Substance: VALPROIC ACID
     Indication: Epilepsy
     Route: 065

REACTIONS (4)
  - Respiratory failure [Fatal]
  - Epileptic encephalopathy [Unknown]
  - Multiple-drug resistance [Unknown]
  - Off label use [Unknown]
